FAERS Safety Report 4377767-4 (Version None)
Quarter: 2004Q2

REPORT INFORMATION
  Report Type: 
  Country: None (occurrence: None)
  Receive Date: 20040614
  Receipt Date: 20040614
  Transmission Date: 20050107
  Serious: No
  Sender: FDA-Public Use
  Company Number: None

PATIENT
  Age: 7 Year
  Sex: Male

DRUGS (1)
  1. AMOXICILLIN [Suspect]

REACTIONS (5)
  - ANGIONEUROTIC OEDEMA [None]
  - COUGH [None]
  - RASH GENERALISED [None]
  - STRIDOR [None]
  - URTICARIA [None]
